FAERS Safety Report 8829812 (Version 1)
Quarter: 2012Q4

REPORT INFORMATION
  Report Type: Spontaneous
  Country: US (occurrence: None)
  Receive Date: 20121005
  Receipt Date: 20121005
  Transmission Date: 20130627
  Serious: Yes (Life-Threatening, Disabling, Other)
  Sender: FDA-Public Use
  Company Number: None

PATIENT
  Age: 29 Year
  Sex: Male
  Weight: 74.84 kg

DRUGS (1)
  1. CHANTIX [Suspect]
     Indication: CESSATION OF SMOKING
     Route: 048
     Dates: start: 20120501, end: 20120927

REACTIONS (12)
  - Insomnia [None]
  - Nightmare [None]
  - Insomnia [None]
  - Paranoia [None]
  - Agitation [None]
  - Disturbance in attention [None]
  - Delusion of grandeur [None]
  - Polydipsia [None]
  - Abnormal behaviour [None]
  - Suicidal ideation [None]
  - Self-injurious ideation [None]
  - Economic problem [None]
